FAERS Safety Report 5610817-3 (Version None)
Quarter: 2008Q1

REPORT INFORMATION
  Report Type: 
  Country: None (occurrence: None)
  Receive Date: 20080201
  Receipt Date: 20080123
  Transmission Date: 20080703
  Serious: Yes (Other)
  Sender: FDA-Public Use
  Company Number: PHBS2008US01351

PATIENT
  Age: 71 Year
  Sex: Male

DRUGS (1)
  1. ZOLEDRONIC ACID [Suspect]
     Indication: MULTIPLE MYELOMA
     Dosage: 4 MG ONCE/MONTH
     Route: 042

REACTIONS (4)
  - BONE DEBRIDEMENT [None]
  - INJURY [None]
  - OSTEONECROSIS [None]
  - SEQUESTRECTOMY [None]
